FAERS Safety Report 22238353 (Version 2)
Quarter: 2023Q2

REPORT INFORMATION
  Report Type: Spontaneous
  Country: ES (occurrence: ES)
  Receive Date: 20230421
  Receipt Date: 20230505
  Transmission Date: 20230722
  Serious: Yes (Other)
  Sender: FDA-Public Use
  Company Number: ES-SAMSUNG BIOEPIS-SB-2023-09805

PATIENT
  Age: 35 Year
  Sex: Female

DRUGS (1)
  1. ENBREL [Suspect]
     Active Substance: ETANERCEPT
     Indication: Palmoplantar pustulosis
     Dosage: 50 MG, WEEKLY (4 WEEKS)
     Route: 065

REACTIONS (2)
  - SAPHO syndrome [Unknown]
  - Off label use [Unknown]
